FAERS Safety Report 10418623 (Version 2)
Quarter: 2014Q3

REPORT INFORMATION
  Report Type: Spontaneous
  Country: NL (occurrence: NL)
  Receive Date: 20140829
  Receipt Date: 20140909
  Transmission Date: 20150326
  Serious: Yes (Hospitalization)
  Sender: FDA-Public Use
  Company Number: PHHY2014NL106450

PATIENT
  Sex: Male

DRUGS (2)
  1. ALDOMET [Suspect]
     Active Substance: METHYLDOPA
     Route: 064
  2. CLOMIPRAMINE [Suspect]
     Active Substance: CLOMIPRAMINE
     Route: 064

REACTIONS (13)
  - Muscle contractions involuntary [Recovering/Resolving]
  - Hypertonia neonatal [Recovering/Resolving]
  - Restlessness [Recovering/Resolving]
  - Dyspnoea [Unknown]
  - Tremor [Unknown]
  - Cyanosis neonatal [Unknown]
  - Hypotonia neonatal [Recovering/Resolving]
  - Foetal exposure during pregnancy [Unknown]
  - Feeding disorder neonatal [Recovering/Resolving]
  - Drug withdrawal syndrome neonatal [Recovering/Resolving]
  - Eye disorder [Unknown]
  - Akathisia [Recovering/Resolving]
  - Oxygen saturation abnormal [Unknown]
